FAERS Safety Report 7946932-9 (Version None)
Quarter: 2011Q4

REPORT INFORMATION
  Report Type: 
  Country: None (occurrence: None)
  Receive Date: 20111129
  Receipt Date: 20060118
  Transmission Date: 20120403
  Serious: Yes (Other)
  Sender: FDA-Public Use
  Company Number: PHHY2006BR009163

PATIENT
  Age: 52 Year
  Sex: Male

DRUGS (3)
  1. EXFORGE [Suspect]
     Indication: HYPERTENSION
     Dosage: 1 DF, QD
     Route: 048
  2. CAPTOPRIL [Concomitant]
  3. LASIX [Concomitant]

REACTIONS (7)
  - MALAISE [None]
  - BLOOD PRESSURE INCREASED [None]
  - HYPERHIDROSIS [None]
  - FEELING HOT [None]
  - COUGH [None]
  - NASOPHARYNGITIS [None]
  - DYSPNOEA [None]
